FAERS Safety Report 4879665-6 (Version None)
Quarter: 2006Q1

REPORT INFORMATION
  Report Type: 
  Country: None (occurrence: None)
  Receive Date: 20060111
  Receipt Date: 20051230
  Transmission Date: 20060701
  Serious: Yes (Other)
  Sender: FDA-Public Use
  Company Number: 218768

PATIENT
  Age: 88 Year
  Sex: Female

DRUGS (11)
  1. RITUXAN [Suspect]
     Indication: LYMPHOMA
     Dates: start: 20050614, end: 20050614
  2. LANOXIN [Concomitant]
  3. NORVASC [Concomitant]
  4. TOPROL-XL [Concomitant]
  5. SYNTHROID [Concomitant]
  6. LASIX [Concomitant]
  7. POTASSIUM CHLORIDE [Concomitant]
  8. BENADRYL [Concomitant]
  9. RANITIDNE (RANITIDINE) [Concomitant]
  10. FLU VACCINE (INFLUENZA VIRUS VACCINE) [Concomitant]
  11. AZATHIOPRINE [Concomitant]

REACTIONS (2)
  - LEUKOPENIA [None]
  - NEUTROPHIL COUNT DECREASED [None]
